FAERS Safety Report 14666553 (Version 1)
Quarter: 2018Q1

REPORT INFORMATION
  Report Type: Spontaneous
  Country: FR (occurrence: FR)
  Receive Date: 20180321
  Receipt Date: 20180321
  Transmission Date: 20180509
  Serious: Yes (Other)
  Sender: FDA-Public Use
  Company Number: FR-MERCK KGAA-2044248

PATIENT
  Age: 38 Year
  Sex: Male

DRUGS (1)
  1. NOVOTHYROX [Suspect]
     Active Substance: LEVOTHYROXINE SODIUM
     Indication: PRODUCT USED FOR UNKNOWN INDICATION

REACTIONS (14)
  - Loss of personal independence in daily activities [None]
  - Myalgia [None]
  - Alopecia [None]
  - Irritability [None]
  - Fatigue [None]
  - Blood thyroid stimulating hormone decreased [None]
  - Muscle spasms [None]
  - Emotional distress [None]
  - Influenza like illness [None]
  - Apathy [None]
  - Chest discomfort [None]
  - Paraesthesia [None]
  - Asthenia [None]
  - Overdose [None]

NARRATIVE: CASE EVENT DATE: 20171011
